FAERS Safety Report 5878036-3 (Version None)
Quarter: 2008Q3

REPORT INFORMATION
  Report Type: 
  Country: None (occurrence: None)
  Receive Date: 20080911
  Receipt Date: 20080903
  Transmission Date: 20090109
  Serious: Yes (Hospitalization)
  Sender: FDA-Public Use
  Company Number: JP-ABBOTT-08P-087-0475399-00

PATIENT
  Age: 77 Year
  Sex: Male

DRUGS (4)
  1. LEUPROLIDE ACETATE [Suspect]
     Indication: PROSTATE CANCER STAGE IV
     Route: 058
     Dates: start: 20061027, end: 20070420
  2. BICALUTAMIDE [Concomitant]
     Indication: PROSTATE CANCER STAGE IV
     Route: 048
     Dates: end: 20070420
  3. NAFTOPIDIL [Concomitant]
     Indication: BENIGN PROSTATIC HYPERPLASIA
     Route: 048
     Dates: end: 20070420
  4. DISTIGMINE BROMIDE [Concomitant]
     Indication: NEUROGENIC BLADDER
     Route: 048
     Dates: end: 20070420

REACTIONS (3)
  - NASOPHARYNGITIS [None]
  - PLEURAL EFFUSION [None]
  - PNEUMONIA [None]
